FAERS Safety Report 8321508-2 (Version None)
Quarter: 2012Q2

REPORT INFORMATION
  Report Type: 
  Country: None (occurrence: None)
  Receive Date: 20120430
  Receipt Date: 20120430
  Transmission Date: 20120825
  Serious: No
  Sender: FDA-Public Use
  Company Number: None

PATIENT
  Age: 28 Year
  Sex: Male
  Weight: 87.543 kg

DRUGS (1)
  1. LEVETIRACETAM [Suspect]
     Indication: EPILEPSY
     Dosage: 1500 MG
     Route: 048
     Dates: start: 20120411, end: 20120428

REACTIONS (11)
  - ABNORMAL BEHAVIOUR [None]
  - AMNESIA [None]
  - IMPRISONMENT [None]
  - DEPRESSIVE SYMPTOM [None]
  - SUICIDAL IDEATION [None]
  - AGGRESSION [None]
  - EYE MOVEMENT DISORDER [None]
  - IRRITABILITY [None]
  - SPEECH DISORDER [None]
  - INSOMNIA [None]
  - CONFUSIONAL STATE [None]
